FAERS Safety Report 5509033-5 (Version None)
Quarter: 2007Q4

REPORT INFORMATION
  Report Type: 
  Country: None (occurrence: None)
  Receive Date: 20071107
  Receipt Date: 20071031
  Transmission Date: 20080405
  Serious: Yes (Other)
  Sender: FDA-Public Use
  Company Number: CA-JNJFOC-20060703121

PATIENT
  Age: 68 Year
  Sex: Male

DRUGS (3)
  1. RISPERDAL [Suspect]
  2. RISPERDAL [Suspect]
  3. RISPERDAL [Suspect]
     Indication: SCHIZOPHRENIA

REACTIONS (5)
  - INFLUENZA LIKE ILLNESS [None]
  - PYREXIA [None]
  - RED BLOOD CELL COUNT DECREASED [None]
  - RESPIRATORY TRACT INFECTION [None]
  - WHITE BLOOD CELL COUNT DECREASED [None]
